FAERS Safety Report 8275138-1 (Version None)
Quarter: 2012Q2

REPORT INFORMATION
  Report Type: 
  Country: None (occurrence: None)
  Receive Date: 20120411
  Receipt Date: 20120403
  Transmission Date: 20120825
  Serious: Yes (Hospitalization)
  Sender: FDA-Public Use
  Company Number: GXKR2010US11970

PATIENT
  Age: 54 Year
  Sex: Female

DRUGS (9)
  1. AZITHROMYCIN [Suspect]
     Dosage: 500 MG, DAILY
     Route: 042
  2. CEFTRIAXONE [Interacting]
     Route: 042
  3. TACROLIMUS [Interacting]
     Route: 065
  4. AZITHROMYCIN [Interacting]
     Dosage: 500 MG, DAILY
     Route: 048
  5. ATORVASTATIN [Concomitant]
     Dosage: 10 MG, DAILY
  6. PREDNISONE TAB [Concomitant]
     Dosage: 5 MG, UNK
  7. SUMATRIPTAN [Concomitant]
  8. CONJUGATED ESTROGENS [Concomitant]
     Dosage: 2.5 MG, DAILY
  9. LISINOPRIL [Concomitant]
     Dosage: 10 MG, DAILY

REACTIONS (2)
  - IMMUNOSUPPRESSANT DRUG LEVEL INCREASED [None]
  - DRUG INTERACTION [None]
